FAERS Safety Report 20728909 (Version 3)
Quarter: 2022Q2

REPORT INFORMATION
  Report Type: Spontaneous
  Country: US (occurrence: US)
  Receive Date: 20220420
  Receipt Date: 20220621
  Transmission Date: 20220721
  Serious: Yes (Other)
  Sender: FDA-Public Use
  Company Number: US-UNITED THERAPEUTICS-UNT-2022-008182

PATIENT
  Sex: Male

DRUGS (2)
  1. REMODULIN [Suspect]
     Active Substance: TREPROSTINIL
     Indication: Pulmonary arterial hypertension
     Dosage: UNK, CONTINUING
     Route: 058
     Dates: start: 20200314
  2. REMODULIN [Suspect]
     Active Substance: TREPROSTINIL
     Dosage: 0.0755 ?G/KG, CONTINUING
     Route: 058

REACTIONS (10)
  - Prostate cancer [Unknown]
  - COVID-19 [Recovering/Resolving]
  - Infusion site swelling [Unknown]
  - Infusion site pain [Recovering/Resolving]
  - Malaise [Unknown]
  - Headache [Unknown]
  - Pyrexia [Unknown]
  - Infusion site haemorrhage [Unknown]
  - Device maintenance issue [Unknown]
  - Device dislocation [Recovered/Resolved]

NARRATIVE: CASE EVENT DATE: 20220101
